FAERS Safety Report 25271215 (Version 1)
Quarter: 2025Q2

REPORT INFORMATION
  Report Type: Spontaneous
  Country: IN (occurrence: IN)
  Receive Date: 20250506
  Receipt Date: 20250506
  Transmission Date: 20250716
  Serious: Yes (Hospitalization, Other)
  Sender: RISING PHARMACEUTICALS
  Company Number: IN-RISINGPHARMA-IN-2025RISLIT00213

PATIENT
  Age: 48 Year
  Sex: Female

DRUGS (2)
  1. METRONIDAZOLE [Suspect]
     Active Substance: METRONIDAZOLE
     Indication: Product used for unknown indication
     Route: 048
  2. LEVOTHYROXINE SODIUM [Concomitant]
     Active Substance: LEVOTHYROXINE SODIUM
     Indication: Hypothyroidism
     Route: 065

REACTIONS (10)
  - Leukoencephalopathy [Recovered/Resolved]
  - Cerebrovascular accident [Recovered/Resolved]
  - Balance disorder [Recovered/Resolved]
  - Speech disorder [Recovered/Resolved]
  - Confusional state [Recovered/Resolved]
  - Agitation [Recovered/Resolved]
  - Ataxia [Recovered/Resolved]
  - Perseveration [Recovered/Resolved]
  - Dysarthria [Recovered/Resolved]
  - Depressed level of consciousness [Recovered/Resolved]
